FAERS Safety Report 15486903 (Version 2)
Quarter: 2021Q1

REPORT INFORMATION
  Report Type: Spontaneous
  Country: IT (occurrence: IT)
  Receive Date: 20181011
  Receipt Date: 20210326
  Transmission Date: 20210419
  Serious: Yes (Life-Threatening, Other)
  Sender: FDA-Public Use
  Company Number: IT-AUROBINDO-AUR-APL-2018-049343

PATIENT
  Age: 38 Year
  Sex: Female

DRUGS (5)
  1. LAMOTRIGINE. [Interacting]
     Active Substance: LAMOTRIGINE
     Dosage: 450 MILLIGRAM
     Route: 065
  2. FOLLITROPIN BETA [Suspect]
     Active Substance: FOLLITROPIN
     Indication: ASSISTED REPRODUCTIVE TECHNOLOGY
     Dosage: UNK
     Route: 065
  3. ESTRADIOL VALERATE. [Interacting]
     Active Substance: ESTRADIOL VALERATE
     Indication: IN VITRO FERTILISATION
     Dosage: 4 MILLIGRAM
     Route: 065
  4. CLOBAZAM. [Concomitant]
     Active Substance: CLOBAZAM
     Indication: GENERALISED TONIC-CLONIC SEIZURE
     Dosage: 10 MILLIGRAM
     Route: 065
  5. LAMOTRIGINE. [Suspect]
     Active Substance: LAMOTRIGINE
     Indication: IN VITRO FERTILISATION
     Dosage: 350 MILLIGRAM
     Route: 065

REACTIONS (6)
  - Condition aggravated [Not Recovered/Not Resolved]
  - Drug ineffective [Unknown]
  - Seizure [Not Recovered/Not Resolved]
  - Exposure during pregnancy [Unknown]
  - Drug interaction [Unknown]
  - Drug level decreased [Unknown]
